FAERS Safety Report 6898084-4 (Version None)
Quarter: 2010Q3

REPORT INFORMATION
  Report Type: 
  Country: None (occurrence: None)
  Receive Date: 20100802
  Receipt Date: 20070910
  Transmission Date: 20110219
  Serious: No
  Sender: FDA-Public Use
  Company Number: US-PFIZER INC-2007076132

PATIENT
  Sex: Female
  Weight: 81.6 kg

DRUGS (8)
  1. LYRICA [Suspect]
     Indication: POST HERPETIC NEURALGIA
     Dates: start: 20070101
  2. METOPROLOL [Concomitant]
  3. LISINOPRIL [Concomitant]
  4. LEVOTHYROXINE SODIUM [Concomitant]
  5. FOSAMAX [Concomitant]
  6. ACETYLSALICYLIC ACID SRT [Concomitant]
  7. CADUET [Concomitant]
  8. SITAGLIPTIN [Concomitant]
     Indication: DIABETES MELLITUS

REACTIONS (2)
  - CONSTIPATION [None]
  - DRUG EFFECT DECREASED [None]
